FAERS Safety Report 12447952 (Version 8)
Quarter: 2018Q3

REPORT INFORMATION
  Report Type: Spontaneous
  Country: IT (occurrence: IT)
  Receive Date: 20160608
  Receipt Date: 20180725
  Transmission Date: 20181010
  Serious: Yes (Death, Other)
  Sender: FDA-Public Use
  Company Number: IT-PFIZER INC-2016284875

PATIENT
  Age: 64 Year
  Sex: Female

DRUGS (7)
  1. AFLIBERCEPT [Suspect]
     Active Substance: AFLIBERCEPT
     Indication: COLON CANCER METASTATIC
     Dosage: UNK, CYCLIC
     Dates: start: 201305, end: 2013
  2. IRINOTECAN HCL [Suspect]
     Active Substance: IRINOTECAN HYDROCHLORIDE
     Indication: COLON CANCER METASTATIC
     Dosage: UNK, CYCLIC
     Dates: start: 201305, end: 2013
  3. FOLINIC ACID [Suspect]
     Active Substance: LEUCOVORIN
     Indication: COLON CANCER METASTATIC
     Dosage: UNK, CYCLIC
     Dates: start: 201305, end: 2013
  4. LMWH [Concomitant]
     Active Substance: UNSPECIFIED INGREDIENT
     Indication: DEEP VEIN THROMBOSIS
     Dosage: UNK
  5. FLUOROURACIL. [Suspect]
     Active Substance: FLUOROURACIL
     Indication: COLON CANCER METASTATIC
     Dosage: UNK, CYCLIC
     Dates: start: 201305, end: 2013
  6. CETUXIMAB. [Concomitant]
     Active Substance: CETUXIMAB
     Indication: COLON CANCER METASTATIC
     Dosage: UNK
  7. XELOX [Concomitant]
     Active Substance: CAPECITABINE\OXALIPLATIN
     Indication: COLON CANCER METASTATIC
     Dosage: UNK

REACTIONS (5)
  - Diarrhoea [Unknown]
  - Neutropenia [Unknown]
  - Osteonecrosis of jaw [Recovering/Resolving]
  - Periodontitis [Unknown]
  - Stomatitis [Unknown]

NARRATIVE: CASE EVENT DATE: 2013
